FAERS Safety Report 15182896 (Version 3)
Quarter: 2019Q2

REPORT INFORMATION
  Report Type: Spontaneous
  Country: US (occurrence: US)
  Receive Date: 20180723
  Receipt Date: 20190613
  Transmission Date: 20190711
  Serious: Yes (Other)
  Sender: FDA-Public Use
  Company Number: US-SA-2018SA194925

PATIENT
  Age: 76 Year
  Sex: Female

DRUGS (1)
  1. APIDRA [Suspect]
     Active Substance: INSULIN GLULISINE
     Indication: TYPE 1 DIABETES MELLITUS
     Dosage: BASAL RATE/BOLUS
     Route: 065
     Dates: start: 2002

REACTIONS (3)
  - Drug ineffective [Unknown]
  - Diabetes mellitus inadequate control [Not Recovered/Not Resolved]
  - Urticaria [Not Recovered/Not Resolved]
